FAERS Safety Report 5254405-X (Version None)
Quarter: 2007Q1

REPORT INFORMATION
  Report Type: 
  Country: None (occurrence: None)
  Receive Date: 20070302
  Receipt Date: 20070222
  Transmission Date: 20070707
  Serious: Yes (Disabling)
  Sender: FDA-Public Use
  Company Number: US-ROCHE-480025

PATIENT
  Age: 61 Year
  Sex: Male
  Weight: 73.9 kg

DRUGS (4)
  1. PEGASYS [Suspect]
     Indication: DRUG USE FOR UNKNOWN INDICATION
     Dosage: STOPPED AT 48 WEEKS.
     Route: 065
     Dates: start: 20040515, end: 20050415
  2. RIBAVIRIN [Suspect]
     Indication: DRUG USE FOR UNKNOWN INDICATION
     Dosage: STOPPED AT 48 WEEKS.
     Route: 065
     Dates: end: 20050415
  3. METFORMIN HCL [Concomitant]
     Route: 048
  4. TYLENOL [Concomitant]
     Route: 048

REACTIONS (7)
  - BALANCE DISORDER [None]
  - DEAFNESS [None]
  - DYSARTHRIA [None]
  - GAIT DISTURBANCE [None]
  - METAL POISONING [None]
  - MUSCULAR WEAKNESS [None]
  - NO THERAPEUTIC RESPONSE [None]
